FAERS Safety Report 13779180 (Version 1)
Quarter: 2017Q3

REPORT INFORMATION
  Report Type: Spontaneous
  Country: BR (occurrence: BR)
  Receive Date: 20170721
  Receipt Date: 20170721
  Transmission Date: 20171127
  Serious: Yes (Other)
  Sender: FDA-Public Use
  Company Number: BR-VALIDUS PHARMACEUTICALS LLC-BR-2017VAL001067

PATIENT
  Sex: Male

DRUGS (1)
  1. PARLODEL [Suspect]
     Active Substance: BROMOCRIPTINE MESYLATE
     Indication: PITUITARY TUMOUR BENIGN
     Dosage: UNK
     Route: 065

REACTIONS (5)
  - Presyncope [Unknown]
  - Vomiting [Unknown]
  - Loss of consciousness [Unknown]
  - Blood pressure fluctuation [Unknown]
  - Dizziness [Unknown]
